FAERS Safety Report 10651890 (Version 1)
Quarter: 2014Q4

REPORT INFORMATION
  Report Type: Report from Study
  Country: IN (occurrence: IN)
  Receive Date: 20141215
  Receipt Date: 20141215
  Transmission Date: 20150529
  Serious: Yes (Hospitalization)
  Sender: FDA-Public Use
  Company Number: PHHY2014IN158792

PATIENT
  Sex: Male
  Weight: 54 kg

DRUGS (6)
  1. PANTOP [Concomitant]
     Indication: RENAL TRANSPLANT
     Dosage: 0.5 MG, QD
     Route: 042
     Dates: start: 2008
  2. DIOVAN [Concomitant]
     Active Substance: VALSARTAN
     Indication: HYPOTENSION
     Dosage: 80 MG, QD
     Route: 048
     Dates: start: 2008
  3. NICARDIA [Concomitant]
     Indication: HYPOTENSION
     Dosage: 10 MG, QD
     Route: 048
  4. MYFORTIC [Suspect]
     Active Substance: MYCOPHENOLATE SODIUM
     Indication: RENAL TRANSPLANT
     Dosage: 360 MG, QD
     Route: 048
     Dates: start: 2008
  5. NARCAN [Concomitant]
     Active Substance: NALOXONE HYDROCHLORIDE
     Indication: HYPOTENSION
     Dosage: 1 MG, QD
     Route: 048
     Dates: start: 2008
  6. INSULIN [Concomitant]
     Active Substance: INSULIN NOS
     Indication: DIABETES MELLITUS
     Dosage: UNK
     Route: 058
     Dates: start: 1987

REACTIONS (1)
  - Pain in extremity [Not Recovered/Not Resolved]

NARRATIVE: CASE EVENT DATE: 2008
